FAERS Safety Report 25863246 (Version 1)
Quarter: 2025Q3

REPORT INFORMATION
  Report Type: Report from Study
  Country: MX (occurrence: MX)
  Receive Date: 20250930
  Receipt Date: 20250930
  Transmission Date: 20251020
  Serious: Yes (Hospitalization)
  Sender: ABBVIE
  Company Number: MX-ABBVIE-6480105

PATIENT
  Age: 41 Year
  Sex: Female
  Weight: 80 kg

DRUGS (2)
  1. UPADACITINIB [Suspect]
     Active Substance: UPADACITINIB
     Indication: Ankylosing spondylitis
     Dosage: DOSE FORM- COATED TABLET?FORM STRENGTH: 15MG
     Route: 048
     Dates: start: 20250827, end: 20250902
  2. UPADACITINIB [Suspect]
     Active Substance: UPADACITINIB
     Indication: Ankylosing spondylitis
     Dosage: DOSE FORM- COATED TABLET?FORM STRENGTH: 15 MG
     Route: 048
     Dates: start: 2025

REACTIONS (7)
  - Vestibular migraine [Recovering/Resolving]
  - Impaired gastric emptying [Recovered/Resolved]
  - Acne [Not Recovered/Not Resolved]
  - Blister [Recovering/Resolving]
  - Swelling face [Not Recovered/Not Resolved]
  - Pain [Recovered/Resolved]
  - Vertigo [Recovering/Resolving]

NARRATIVE: CASE EVENT DATE: 20250902
